FAERS Safety Report 8007768-6 (Version None)
Quarter: 2011Q4

REPORT INFORMATION
  Report Type: 
  Country: None (occurrence: None)
  Receive Date: 20111227
  Receipt Date: 20111222
  Transmission Date: 20120403
  Serious: No
  Sender: FDA-Public Use
  Company Number: US-BAYER-2011-123172

PATIENT
  Age: 47 Year
  Sex: Female

DRUGS (1)
  1. MIRENA [Suspect]
     Indication: CONTRACEPTION
     Dosage: 20 MCG/24HR, CONT
     Route: 015
     Dates: start: 20071015

REACTIONS (7)
  - MALAISE [None]
  - HEADACHE [None]
  - ASTHENIA [None]
  - DYSPAREUNIA [None]
  - AMENORRHOEA [None]
  - MEDICAL DEVICE PAIN [None]
  - VIRAL INFECTION [None]
